FAERS Safety Report 7133085-2 (Version None)
Quarter: 2010Q4

REPORT INFORMATION
  Report Type: 
  Country: None (occurrence: None)
  Receive Date: 20101202
  Receipt Date: 20101125
  Transmission Date: 20110411
  Serious: Yes (Hospitalization)
  Sender: FDA-Public Use
  Company Number: B0686077A

PATIENT
  Sex: Female

DRUGS (3)
  1. LAMICTAL [Suspect]
     Dosage: 100MG PER DAY
     Route: 048
     Dates: start: 20101028, end: 20101108
  2. EFFEXOR [Concomitant]
     Route: 065
     Dates: start: 20101001, end: 20101108
  3. ZOPLICONE [Concomitant]
     Route: 065
     Dates: start: 20101001, end: 20101108

REACTIONS (8)
  - HYPERSENSITIVITY [None]
  - INCORRECT DOSE ADMINISTERED [None]
  - LYMPHOPENIA [None]
  - PRURITUS [None]
  - PYREXIA [None]
  - RASH MACULO-PAPULAR [None]
  - THROMBOCYTOPENIA [None]
  - TRANSAMINASES INCREASED [None]
